FAERS Safety Report 11699602 (Version 2)
Quarter: 2015Q4

REPORT INFORMATION
  Report Type: Report from Study
  Country: US (occurrence: US)
  Receive Date: 20151105
  Receipt Date: 20151228
  Transmission Date: 20160304
  Serious: Yes (Hospitalization)
  Sender: FDA-Public Use
  Company Number: US-ROCHE-ITM201506IM017623

PATIENT
  Sex: Male
  Weight: 95.79 kg

DRUGS (3)
  1. LETAIRIS [Suspect]
     Active Substance: AMBRISENTAN
     Indication: PRODUCT USED FOR UNKNOWN INDICATION
     Route: 065
  2. ESBRIET [Suspect]
     Active Substance: PIRFENIDONE
     Indication: IDIOPATHIC PULMONARY FIBROSIS
     Dosage: 3 CAPSULES TID
     Route: 048
     Dates: start: 20150521
  3. ESBRIET [Suspect]
     Active Substance: PIRFENIDONE
     Dosage: 3 CAPSULES TID
     Route: 048
     Dates: start: 20150616

REACTIONS (7)
  - Pneumonia [Unknown]
  - Nausea [Unknown]
  - Lethargy [Unknown]
  - Pulmonary oedema [Unknown]
  - Nausea [Recovered/Resolved]
  - Rash [Unknown]
  - Dyspepsia [Unknown]
